FAERS Safety Report 7409413-7 (Version None)
Quarter: 2011Q2

REPORT INFORMATION
  Report Type: 
  Country: None (occurrence: None)
  Receive Date: 20110412
  Receipt Date: 20110331
  Transmission Date: 20111010
  Serious: Yes (Other)
  Sender: FDA-Public Use
  Company Number: FR-BAYER-2011-015596

PATIENT
  Age: 33 Year
  Sex: Female
  Weight: 54.875 kg

DRUGS (1)
  1. MIRENA [Suspect]
     Indication: CONTRACEPTION
     Dosage: 20 ?G, CONT
     Route: 015
     Dates: start: 20101215, end: 20110211

REACTIONS (5)
  - ABDOMINAL PAIN LOWER [None]
  - AMENORRHOEA [None]
  - UTERINE PERFORATION [None]
  - MALAISE [None]
  - PROCEDURAL PAIN [None]
